FAERS Safety Report 15538482 (Version 10)
Quarter: 2022Q3

REPORT INFORMATION
  Report Type: Spontaneous
  Country: DE (occurrence: DE)
  Receive Date: 20181022
  Receipt Date: 20220701
  Transmission Date: 20221027
  Serious: Yes (Hospitalization)
  Sender: FDA-Public Use
  Company Number: DE-002147023-PHHY2018DE007005

PATIENT
  Age: 62 Year
  Sex: Female
  Weight: 45 kg

DRUGS (120)
  1. SIMVASTATIN [Interacting]
     Active Substance: SIMVASTATIN
     Indication: Product used for unknown indication
     Dosage: 40 MG, QD,  (0-0-1-0)
     Route: 048
  2. SIMVASTATIN [Interacting]
     Active Substance: SIMVASTATIN
     Dosage: 40 MILLIGRAM, QD
     Route: 048
  3. MAGNESIUM OXIDE [Interacting]
     Active Substance: MAGNESIUM OXIDE
     Indication: Product used for unknown indication
     Dosage: UNK, BID,  (2-0-0-0)
     Route: 048
  4. MAGNESIUM OXIDE [Interacting]
     Active Substance: MAGNESIUM OXIDE
     Dosage: 2 DOSAGE FORM, QD
     Route: 048
  5. MAGNESIUM OXIDE [Interacting]
     Active Substance: MAGNESIUM OXIDE
     Dosage: 1 DOSAGE FORM, QD
     Route: 048
  6. MAGNESIUM OXIDE [Interacting]
     Active Substance: MAGNESIUM OXIDE
     Indication: Product used for unknown indication
     Dosage: UNK UNK,BID (2-0-0-0)
     Route: 048
  7. MAGNESIUM OXIDE [Interacting]
     Active Substance: MAGNESIUM OXIDE
     Dosage: 2 DOSAGE FORM, QD
     Route: 048
  8. MAGNESIUM OXIDE [Interacting]
     Active Substance: MAGNESIUM OXIDE
     Dosage: 1 DOSAGE FORM, QD
     Route: 048
  9. ACETAMINOPHEN [Suspect]
     Active Substance: ACETAMINOPHEN
     Indication: Product used for unknown indication
     Dosage: 1 DOSAGE FORM, Q8H( 30 GTT DROPS, TID )
     Route: 048
  10. ACETAMINOPHEN [Suspect]
     Active Substance: ACETAMINOPHEN
     Dosage: 90 DOSAGE FORM, QD
     Route: 048
  11. ACETAMINOPHEN [Suspect]
     Active Substance: ACETAMINOPHEN
     Dosage: 1 DOSAGE FORM, QD
     Route: 048
  12. TIOTROPIUM [Suspect]
     Active Substance: TIOTROPIUM
     Indication: Product used for unknown indication
     Dosage: 2 DOSAGE FORM, QD
     Route: 055
  13. TIOTROPIUM [Suspect]
     Active Substance: TIOTROPIUM
     Dosage: 36 MICROGRAM, QD
     Route: 055
  14. TIOTROPIUM [Suspect]
     Active Substance: TIOTROPIUM
     Dosage: 36 MICROGRAM, BID
     Route: 055
  15. TIOTROPIUM [Suspect]
     Active Substance: TIOTROPIUM
     Dosage: 18 MICROGRAM, BID
     Route: 055
  16. PANTOPRAZOLE [Interacting]
     Active Substance: PANTOPRAZOLE
     Indication: Product used for unknown indication
     Dosage: 40 MG,QD (1-0-0-0)
     Route: 048
  17. PANTOPRAZOLE [Interacting]
     Active Substance: PANTOPRAZOLE
     Dosage: 40 MILLIGRAM, QD
     Route: 048
  18. EZETIMIBE [Suspect]
     Active Substance: EZETIMIBE
     Indication: Product used for unknown indication
     Dosage: 10 MILLIGRAM, QD
     Route: 048
  19. URSODIOL [Interacting]
     Active Substance: URSODIOL
     Indication: Product used for unknown indication
     Dosage: 500 MG, BID, (1-0-1-0)
     Route: 048
  20. URSODIOL [Interacting]
     Active Substance: URSODIOL
     Dosage: 500 MG, Q12H
     Route: 048
  21. URSODIOL [Interacting]
     Active Substance: URSODIOL
     Dosage: 500 MILLIGRAM, QD
     Route: 048
  22. URSODIOL [Interacting]
     Active Substance: URSODIOL
     Dosage: 500 MG, BID (1-0-1-0)
     Route: 048
  23. URSODIOL [Interacting]
     Active Substance: URSODIOL
     Dosage: 500 MG, Q12H
     Route: 048
  24. METAMIZOLE SODIUM [Interacting]
     Active Substance: METAMIZOLE SODIUM
     Indication: Product used for unknown indication
     Dosage: 30 OT, TID (30 TROPFEN, 1-1-1-0)
     Route: 048
  25. METAMIZOLE SODIUM [Interacting]
     Active Substance: METAMIZOLE SODIUM
     Dosage: 1 DOSAGE FORM, QD
     Route: 048
  26. METAMIZOLE SODIUM [Interacting]
     Active Substance: METAMIZOLE SODIUM
     Dosage: 90 DOSAGE FORM, QD (90 DF, QD, UNIT DOSE: 30 DROPS)
     Route: 048
  27. METAMIZOLE SODIUM [Interacting]
     Active Substance: METAMIZOLE SODIUM
     Dosage: 30 GTT, TID (30 TROPFEN, 1-1-1-0)
     Route: 048
  28. SPIRONOLACTONE [Interacting]
     Active Substance: SPIRONOLACTONE
     Indication: Product used for unknown indication
     Dosage: 100 MG, BID, (2-0-0-0)
     Route: 048
  29. SPIRONOLACTONE [Interacting]
     Active Substance: SPIRONOLACTONE
     Dosage: 200 MILLIGRAM, QD(200 MG, QD,100 MG, BID (2-0-0-0))
     Route: 048
  30. SPIRONOLACTONE [Interacting]
     Active Substance: SPIRONOLACTONE
     Dosage: 100 MILLIGRAM, QD
     Route: 048
  31. SPIRONOLACTONE [Interacting]
     Active Substance: SPIRONOLACTONE
     Dosage: 2 DF, QD
     Route: 048
  32. SPIRONOLACTONE [Interacting]
     Active Substance: SPIRONOLACTONE
     Dosage: 200 MG, BID
     Route: 048
  33. SPIRONOLACTONE [Interacting]
     Active Substance: SPIRONOLACTONE
     Dosage: 200 MG, BID
     Route: 048
  34. SPIRONOLACTONE [Interacting]
     Active Substance: SPIRONOLACTONE
     Dosage: 100 MG, BID (2-0-0-0)
     Route: 048
  35. FLUTICASONE PROPIONATE\SALMETEROL XINAFOATE [Interacting]
     Active Substance: FLUTICASONE PROPIONATE\SALMETEROL XINAFOATE
     Indication: Product used for unknown indication
     Dosage: UNK, BID, 50|500 MUG,(1-0-1-0)
     Route: 055
  36. FLUTICASONE PROPIONATE\SALMETEROL XINAFOATE [Interacting]
     Active Substance: FLUTICASONE PROPIONATE\SALMETEROL XINAFOATE
     Dosage: 2 DOSAGE FORM, QD (2 DF, QD, 50|500 ?G,)
     Route: 055
  37. FLUTICASONE PROPIONATE\SALMETEROL XINAFOATE [Interacting]
     Active Substance: FLUTICASONE PROPIONATE\SALMETEROL XINAFOATE
     Dosage: 1 DOSAGE FORM, QD
     Route: 055
  38. FLUTICASONE PROPIONATE\SALMETEROL XINAFOATE [Interacting]
     Active Substance: FLUTICASONE PROPIONATE\SALMETEROL XINAFOATE
     Dosage: 50|500 G,( 1-0-1-0)
     Route: 055
  39. FLUTICASONE PROPIONATE\SALMETEROL XINAFOATE [Interacting]
     Active Substance: FLUTICASONE PROPIONATE\SALMETEROL XINAFOATE
     Dosage: 1 DOSAGE FORM, QD
     Route: 055
  40. FLUTICASONE PROPIONATE\SALMETEROL XINAFOATE [Interacting]
     Active Substance: FLUTICASONE PROPIONATE\SALMETEROL XINAFOATE
     Dosage: 50|500 ?G,( 1-0-1-0)
     Route: 048
  41. FLUTICASONE PROPIONATE\SALMETEROL XINAFOATE [Interacting]
     Active Substance: FLUTICASONE PROPIONATE\SALMETEROL XINAFOATE
     Dosage: 1 OT, QD
     Route: 055
  42. FLUTICASONE PROPIONATE\SALMETEROL XINAFOATE [Interacting]
     Active Substance: FLUTICASONE PROPIONATE\SALMETEROL XINAFOATE
     Dosage: 2 DOSAGE FORM, QD
     Route: 055
  43. FLUTICASONE PROPIONATE\SALMETEROL XINAFOATE [Interacting]
     Active Substance: FLUTICASONE PROPIONATE\SALMETEROL XINAFOATE
     Dosage: 2 UNK (2 UNK, UNK )
     Route: 055
  44. FUROSEMIDE [Interacting]
     Active Substance: FUROSEMIDE
     Indication: Product used for unknown indication
     Dosage: 40 MG, UNK (4-0-0-0)
     Route: 048
  45. FUROSEMIDE [Interacting]
     Active Substance: FUROSEMIDE
     Dosage: 40 MILLIGRAM, QD
     Route: 048
  46. FUROSEMIDE [Interacting]
     Active Substance: FUROSEMIDE
     Dosage: 160 MILLIGRAM, QD
     Route: 048
  47. FUROSEMIDE [Interacting]
     Active Substance: FUROSEMIDE
     Dosage: 40 MG,QID
     Route: 048
  48. FUROSEMIDE [Interacting]
     Active Substance: FUROSEMIDE
     Dosage: 40 MG,QID
     Route: 048
  49. CHOLECALCIFEROL [Interacting]
     Active Substance: CHOLECALCIFEROL
     Indication: Product used for unknown indication
     Dosage: 100 OT, QD (100 IE, 1-0-0-0)
     Route: 048
  50. CHOLECALCIFEROL [Interacting]
     Active Substance: CHOLECALCIFEROL
     Dosage: 100 INTERNATIONAL UNIT, QD (100 IE, 1-0-0-0)
     Route: 048
  51. CHOLECALCIFEROL [Interacting]
     Active Substance: CHOLECALCIFEROL
     Dosage: UNK, QD
     Route: 048
  52. CHOLECALCIFEROL [Interacting]
     Active Substance: CHOLECALCIFEROL
     Dosage: 1 DOSAGE FORM, QD
     Route: 048
  53. LACTULOSE [Interacting]
     Active Substance: LACTULOSE
     Indication: Product used for unknown indication
     Dosage: UNK, QD, (1 MESSBECHER, 0-0-1-0)
     Route: 048
  54. LACTULOSE [Interacting]
     Active Substance: LACTULOSE
     Dosage: 1 DOSAGE FORM, QD
     Route: 048
  55. LACTULOSE [Interacting]
     Active Substance: LACTULOSE
     Dosage: 1 DF, QD, 1 MEASURING CUP
     Route: 048
  56. LACTULOSE [Interacting]
     Active Substance: LACTULOSE
     Dosage: 1 OT, QD
     Route: 048
  57. LACTULOSE [Interacting]
     Active Substance: LACTULOSE
     Dosage: 1 DOSAGE FORM, QD
     Route: 048
  58. LACTULOSE [Interacting]
     Active Substance: LACTULOSE
     Dosage: UNK
     Route: 065
  59. FENTANYL [Interacting]
     Active Substance: FENTANYL
     Indication: Product used for unknown indication
     Dosage: 50 MICROGRAM
     Route: 047
  60. CITRIC ACID MONOHYDRATE\POTASSIUM BICARBONATE\POTASSIUM CITRATE [Interacting]
     Active Substance: CITRIC ACID MONOHYDRATE\POTASSIUM BICARBONATE\POTASSIUM CITRATE
     Indication: Product used for unknown indication
     Dosage: 100 MG, QD, (1-0-0-0)
     Route: 048
  61. CITRIC ACID MONOHYDRATE\POTASSIUM BICARBONATE\POTASSIUM CITRATE [Interacting]
     Active Substance: CITRIC ACID MONOHYDRATE\POTASSIUM BICARBONATE\POTASSIUM CITRATE
     Dosage: UNK
     Route: 048
  62. EZETIMIBE [Interacting]
     Active Substance: EZETIMIBE
     Indication: Product used for unknown indication
     Dosage: 10 MG, QD (1-0-0-0)
     Route: 048
  63. SPIRIVA [Interacting]
     Active Substance: TIOTROPIUM BROMIDE MONOHYDRATE
     Indication: Product used for unknown indication
     Dosage: 18 UG, BID (1-0-1-0) (36 UG, QD, 18 UG, BID (1-0-1-0))
     Route: 055
  64. SPIRIVA [Interacting]
     Active Substance: TIOTROPIUM BROMIDE MONOHYDRATE
     Dosage: 18 UG, BID
     Route: 055
  65. SPIRIVA [Interacting]
     Active Substance: TIOTROPIUM BROMIDE MONOHYDRATE
     Dosage: 18 UG, BID (36 UG, 1-0-1-0)
     Route: 055
  66. SPIRIVA [Interacting]
     Active Substance: TIOTROPIUM BROMIDE MONOHYDRATE
     Dosage: 18 UG, BID
     Route: 055
  67. SPIRIVA [Interacting]
     Active Substance: TIOTROPIUM BROMIDE MONOHYDRATE
     Dosage: 2 DOSAGE FORM, QD
     Route: 055
  68. RAPAMUNE [Interacting]
     Active Substance: SIROLIMUS
     Indication: Product used for unknown indication
     Dosage: 1 MG, QD (1-0-0-0)
     Route: 048
  69. RAPAMUNE [Interacting]
     Active Substance: SIROLIMUS
     Dosage: UNK
     Route: 048
  70. RAPAMUNE [Interacting]
     Active Substance: SIROLIMUS
     Dosage: 1 MILLIGRAM, QD
     Route: 048
  71. BENSERAZIDE\LEVODOPA [Interacting]
     Active Substance: BENSERAZIDE\LEVODOPA
     Indication: Product used for unknown indication
     Dosage: 100 MG, QD (1-0-2.5-0)
     Route: 048
  72. BENSERAZIDE\LEVODOPA [Interacting]
     Active Substance: BENSERAZIDE\LEVODOPA
     Dosage: 100 MG, BID
     Route: 048
  73. BENSERAZIDE\LEVODOPA [Interacting]
     Active Substance: BENSERAZIDE\LEVODOPA
     Dosage: 100 MG, QD
     Route: 048
  74. BENSERAZIDE\LEVODOPA [Interacting]
     Active Substance: BENSERAZIDE\LEVODOPA
     Dosage: 1 DOSAGE FORM, QD
     Route: 055
  75. ESIDRIX [Interacting]
     Active Substance: HYDROCHLOROTHIAZIDE
     Indication: Product used for unknown indication
     Dosage: 25 MG, QD,  (1-0-0-0)
     Route: 048
  76. ESIDRIX [Interacting]
     Active Substance: HYDROCHLOROTHIAZIDE
     Dosage: 25 MG, QD
     Route: 048
  77. PANTOZOL [Interacting]
     Active Substance: PANTOPRAZOLE SODIUM
     Indication: Product used for unknown indication
     Dosage: 40 MG, QD, (1-0-0-0)
     Route: 048
  78. AMBROXOL HYDROCHLORIDE [Interacting]
     Active Substance: AMBROXOL HYDROCHLORIDE
     Indication: Product used for unknown indication
     Dosage: 30 GTT DROPS, PRN (BEDARF)
     Route: 048
  79. AMBROXOL HYDROCHLORIDE [Interacting]
     Active Substance: AMBROXOL HYDROCHLORIDE
     Dosage: UNK(30 GTT DROPS, PRN; AS REQUIRED  )
     Route: 048
  80. AMBROXOL HYDROCHLORIDE [Interacting]
     Active Substance: AMBROXOL HYDROCHLORIDE
     Dosage: (REQUIREMENT, BEDARFAS NECESSARY) (UNK [30 DROP
     Route: 048
  81. AZATHIOPRINE [Interacting]
     Active Substance: AZATHIOPRINE
     Indication: Product used for unknown indication
     Dosage: 50 MILLIGRAM, QD
     Route: 048
  82. AZATHIOPRINE [Interacting]
     Active Substance: AZATHIOPRINE
     Dosage: 50 MILLIGRAM, UNK
     Route: 048
  83. CITRIC ACID MONOHYDRATE\POTASSIUM BICARBONATE\POTASSIUM CITRATE [Suspect]
     Active Substance: CITRIC ACID MONOHYDRATE\POTASSIUM BICARBONATE\POTASSIUM CITRATE
     Indication: Product used for unknown indication
     Dosage: 100 MILLIGRAM, QD (100 MG, 1-0-0-0 )
     Route: 048
  84. MAGNESIUM [Suspect]
     Active Substance: MAGNESIUM
     Indication: Product used for unknown indication
     Dosage: 1 DOSAGE FORM, QD
     Route: 048
  85. MAGNESIUM [Suspect]
     Active Substance: MAGNESIUM
     Dosage: UNK, QD
     Route: 048
  86. MAGNESIUM [Suspect]
     Active Substance: MAGNESIUM
     Dosage: UNK, BID
     Route: 048
  87. MAGNESIUM [Suspect]
     Active Substance: MAGNESIUM
     Dosage: 2 DOSAGE FORM, QD
     Route: 048
  88. MAGNESIUM [Suspect]
     Active Substance: MAGNESIUM
     Dosage: 2 OT, QD
     Route: 048
  89. ALUMINUM HYDROXIDE\MAGNESIUM HYDROXIDE [Suspect]
     Active Substance: ALUMINUM HYDROXIDE\MAGNESIUM HYDROXIDE
     Indication: Product used for unknown indication
     Dosage: 2 DOSAGE FORM, QD
     Route: 048
  90. ACETAMINOPHEN\PENTAZOCINE HYDROCHLORIDE [Suspect]
     Active Substance: ACETAMINOPHEN\PENTAZOCINE HYDROCHLORIDE
     Indication: Product used for unknown indication
     Dosage: 90 DF, QD, UNIT DOSE: 30 DROPS
     Route: 048
  91. ACETAMINOPHEN\PENTAZOCINE HYDROCHLORIDE [Suspect]
     Active Substance: ACETAMINOPHEN\PENTAZOCINE HYDROCHLORIDE
     Dosage: 30 GTT DROPS, TID
     Route: 048
  92. ACETAMINOPHEN\PENTAZOCINE HYDROCHLORIDE [Suspect]
     Active Substance: ACETAMINOPHEN\PENTAZOCINE HYDROCHLORIDE
     Dosage: 1 DOSAGE FORM, QD
     Route: 048
  93. ACETAMINOPHEN\PENTAZOCINE HYDROCHLORIDE [Suspect]
     Active Substance: ACETAMINOPHEN\PENTAZOCINE HYDROCHLORIDE
     Dosage: 90 DOSAGE FORM, QD
     Route: 048
  94. BENSERAZIDE HYDROCHLORIDE [Suspect]
     Active Substance: BENSERAZIDE HYDROCHLORIDE
     Indication: Product used for unknown indication
     Dosage: 100 MG, UNK (1-0-2.5-0) (100 MG
     Route: 048
  95. BENSERAZIDE HYDROCHLORIDE [Suspect]
     Active Substance: BENSERAZIDE HYDROCHLORIDE
     Dosage: 100 MILLIGRAM, BID ((100 MILLIGRAM(S)) IN 12 HOUR)
     Route: 048
  96. BENSERAZIDE HYDROCHLORIDE [Suspect]
     Active Substance: BENSERAZIDE HYDROCHLORIDE
     Dosage: 200 MILLIGRAM, BID
     Route: 048
  97. MAGNESIUM [Suspect]
     Active Substance: MAGNESIUM
     Indication: Product used for unknown indication
     Dosage: UNK, QD
     Route: 048
  98. MAGNESIUM [Suspect]
     Active Substance: MAGNESIUM
     Dosage: UNK, BID
     Route: 048
  99. DIPYRONE [Interacting]
     Active Substance: DIPYRONE
     Indication: Product used for unknown indication
     Dosage: 30 OT, TID (30 TROPFEN, 1-1-1-0)
     Route: 048
  100. BENSERAZIDE\LEVODOPA [Interacting]
     Active Substance: BENSERAZIDE\LEVODOPA
     Indication: Product used for unknown indication
     Dosage: 100 MG, UNK (1-0-2.5-0)
     Route: 048
  101. BENSERAZIDE\LEVODOPA [Interacting]
     Active Substance: BENSERAZIDE\LEVODOPA
     Dosage: 200 MILLIGRAM (200.0 MILLIGRAM(S) (100 MILLIGRAM(S)),1 IN 12 HOUR  )
     Route: 048
  102. MAGNESIUM [Interacting]
     Active Substance: MAGNESIUM
     Indication: Product used for unknown indication
     Dosage: UNK (2-0-0-0)
     Route: 048
  103. METAMIZOLE [Interacting]
     Active Substance: METAMIZOLE
     Indication: Product used for unknown indication
     Dosage: 30 GTT DROPS, Q8H
     Route: 048
  104. METAMIZOLE [Interacting]
     Active Substance: METAMIZOLE
     Dosage: 30 OT, TID (30 TROPFEN, 1-1-1-0)
     Route: 048
  105. METAMIZOLE [Interacting]
     Active Substance: METAMIZOLE
     Dosage: UNK UNK, TID (30 TROPFEN, 1-1-1-0)
     Route: 048
  106. METAMIZOLE [Interacting]
     Active Substance: METAMIZOLE
     Dosage: UNK UNK, TID (30 TROPFEN, 1-1-1-0)
     Route: 048
  107. MAGNESIUM [Interacting]
     Active Substance: MAGNESIUM
     Indication: Product used for unknown indication
     Dosage: 2 DOSAGE FORM, QD (2 OT, QD (2-0-0-0))
     Route: 048
  108. MAGNESIUM [Interacting]
     Active Substance: MAGNESIUM
     Dosage: UNK, BID
     Route: 048
  109. MAGNESIUM [Interacting]
     Active Substance: MAGNESIUM
     Dosage: 1 DOSAGE FORM, QD
     Route: 048
  110. POTASSIUM CHLORIDE [Interacting]
     Active Substance: POTASSIUM CHLORIDE
     Indication: Product used for unknown indication
     Dosage: 100 MILLIGRAM, QD
     Route: 048
  111. FENTANYL [Interacting]
     Active Substance: FENTANYL
     Indication: Product used for unknown indication
     Dosage: 50 MICROGRAM, QD
     Route: 048
  112. AMBROXOL [Suspect]
     Active Substance: AMBROXOL
     Indication: Product used for unknown indication
     Dosage: 30 DROP, PRN
     Route: 048
  113. MAGNESIUM [Suspect]
     Active Substance: MAGNESIUM
     Indication: Product used for unknown indication
     Dosage: 2 DOSAGE FORM, BID
     Route: 048
  114. ACETAMINOPHEN\CAFFEINE\PHENYLEPHRINE HYDROCHLORIDE [Suspect]
     Active Substance: ACETAMINOPHEN\CAFFEINE\PHENYLEPHRINE HYDROCHLORIDE
     Indication: Product used for unknown indication
     Dosage: 30 GTT DROPS, Q8H (30 GTT DROPS, TID)
     Route: 048
  115. PENTAZOCINE [Suspect]
     Active Substance: PENTAZOCINE
     Indication: Product used for unknown indication
     Dosage: 1 DOSAGE FORM, QD
     Route: 048
  116. PENTAZOCINE [Suspect]
     Active Substance: PENTAZOCINE
     Dosage: 30 GTT DROPS, Q8H (30 GTT DROPS, TID  )
     Route: 048
  117. PENTAZOCINE [Suspect]
     Active Substance: PENTAZOCINE
     Dosage: 90 DOSAGE FORM, QD
     Route: 048
  118. METAMIZOLE [Suspect]
     Active Substance: METAMIZOLE
     Indication: Product used for unknown indication
     Dosage: 30 GTT DROPS, Q8H
     Route: 048
  119. SIMVASTATIN [Concomitant]
     Active Substance: SIMVASTATIN
     Indication: Product used for unknown indication
     Dosage: 40 MILLIGRAM, QD
     Route: 048
  120. BENSERAZIDE HYDROCHLORIDE [Concomitant]
     Active Substance: BENSERAZIDE HYDROCHLORIDE
     Indication: Product used for unknown indication
     Dosage: 100 MILLIGRAM, BID
     Route: 048

REACTIONS (4)
  - General physical health deterioration [Unknown]
  - Product prescribing error [Unknown]
  - Drug interaction [Unknown]
  - Intentional product misuse [Unknown]

NARRATIVE: CASE EVENT DATE: 20150916
